FAERS Safety Report 10196098 (Version 1)
Quarter: 2014Q2

REPORT INFORMATION
  Report Type: Spontaneous
  Country: FI (occurrence: FI)
  Receive Date: 20140527
  Receipt Date: 20140527
  Transmission Date: 20141212
  Serious: No
  Sender: FDA-Public Use
  Company Number: FI-JNJFOC-20140509385

PATIENT
  Sex: Female

DRUGS (3)
  1. DUROGESIC [Suspect]
     Indication: NEURALGIA
  2. DUROGESIC [Suspect]
     Indication: NEURALGIA
  3. INSULIN [Concomitant]
     Route: 065

REACTIONS (5)
  - Headache [Unknown]
  - Wrong technique in drug usage process [Unknown]
  - Product adhesion issue [Unknown]
  - Dizziness [Unknown]
  - Dermatitis contact [Unknown]
